FAERS Safety Report 10025952 (Version 1)
Quarter: 2014Q1

REPORT INFORMATION
  Report Type: Spontaneous
  Country: FR (occurrence: None)
  Receive Date: 20140314
  Receipt Date: 20140314
  Transmission Date: 20141002
  Serious: Yes (Disabling)
  Sender: FDA-Public Use
  Company Number: 7274538

PATIENT
  Age: 68 Year
  Sex: Female

DRUGS (8)
  1. LEVOTHYROX (LEVOTHROXINE SODIUM) (100 MICROGRAM, TABLET) (LEVOTHYROXINE SODIUM) [Suspect]
     Indication: THYROIDECTOMY
     Dosage: BEFORE 2001
     Route: 048
     Dates: start: 2001
  2. METFORMIN (METFORMIN) (METFORMIN) [Suspect]
     Indication: TYPE 2 DIABETES MELLITUS
     Route: 048
  3. ATORVASTATIN (ATORVASTATIN) (ATORVASTATIN) [Suspect]
     Indication: PERIPHERAL ARTERIAL OCCLUSIVE DISEASE
     Route: 048
     Dates: start: 2008
  4. NEBILOX (NEBIVOLOL HYDROCHLORIDE) (1MG, TABLET) (NEBIVOLOL HYDROCHLORIDE) [Suspect]
     Indication: HYPERTENSION
     Route: 048
     Dates: start: 200911
  5. LANSOPRAZOLE (LANSOPRAZOLE) (LANSOPRAZOLE) [Suspect]
     Indication: PRODUCT USED FOR UNKNOWN INDICATION
     Route: 048
     Dates: start: 2010
  6. COAPPROVEL (KARVEA HCT) (FILM-COATED TABLET) (HYDROCHLOROTHIAZIDE, IRBESARTAN) [Suspect]
     Indication: HYPERTENSION
     Route: 048
     Dates: start: 200902
  7. LORAZEPAM (LORAZEPAM) (LORAZEPAM) [Suspect]
     Indication: ANXIETY
     Route: 048
     Dates: start: 2011
  8. PLAVIX /01220701/ (CLOPIDOGREL) (75MG, FILM-COATED TABLET) (CLOPIDOGREL) [Suspect]
     Indication: PERIPHERAL ARTERIAL OCCLUSIVE DISEASE
     Route: 048
     Dates: start: 2004

REACTIONS (10)
  - Osteonecrosis [None]
  - Lymphoma [None]
  - Hyperthermia [None]
  - Normochromic normocytic anaemia [None]
  - Hyponatraemia [None]
  - General physical condition abnormal [None]
  - Weight decreased [None]
  - Hyperhidrosis [None]
  - Inflammation [None]
  - Eosinophilia [None]
